FAERS Safety Report 9484920 (Version 2)
Quarter: 2013Q3

REPORT INFORMATION
  Report Type: Spontaneous
  Country: US (occurrence: US)
  Receive Date: 20130828
  Receipt Date: 20130828
  Transmission Date: 20140515
  Serious: No
  Sender: FDA-Public Use
  Company Number: US-ABBOTT-13P-163-1100101-00

PATIENT
  Age: 66 Year
  Sex: Male
  Weight: 67.19 kg

DRUGS (4)
  1. ANDROGEL [Suspect]
     Indication: BLOOD TESTOSTERONE DECREASED
     Dosage: TWO SQUIRTS PER DAY
     Dates: start: 201302, end: 201305
  2. ANDROGEL [Suspect]
     Dosage: THREE SQUIRTS PER DAY
     Dates: start: 201305
  3. SIMVASTATIN [Concomitant]
     Indication: BLOOD CHOLESTEROL INCREASED
  4. INSULIN [Concomitant]
     Indication: DIABETES MELLITUS

REACTIONS (3)
  - Muscle spasms [Not Recovered/Not Resolved]
  - Drug ineffective [Unknown]
  - Blood testosterone decreased [Not Recovered/Not Resolved]
